FAERS Safety Report 9261593 (Version 1)
Quarter: 2013Q2

REPORT INFORMATION
  Report Type: Spontaneous
  Country: US (occurrence: US)
  Receive Date: 20130429
  Receipt Date: 20130429
  Transmission Date: 20140414
  Serious: Yes (Other)
  Sender: FDA-Public Use
  Company Number: US-PFIZER INC-2013133410

PATIENT
  Age: 58 Year
  Sex: Female
  Weight: 88.89 kg

DRUGS (3)
  1. NEURONTIN [Suspect]
     Indication: COMPLEX REGIONAL PAIN SYNDROME
     Dosage: 3200 MG/DAY
     Route: 048
  2. AMITRIPTYLINE [Concomitant]
     Dosage: 25 MG, UNK
  3. AMBIEN CR [Concomitant]
     Dosage: UNK

REACTIONS (2)
  - Gangrene [Unknown]
  - Off label use [Unknown]
